FAERS Safety Report 7709536-9 (Version None)
Quarter: 2011Q3

REPORT INFORMATION
  Report Type: 
  Country: None (occurrence: None)
  Receive Date: 20110825
  Receipt Date: 20110815
  Transmission Date: 20111222
  Serious: Yes (Other)
  Sender: FDA-Public Use
  Company Number: US-AMGEN-USASP2011041535

PATIENT
  Age: 58 Year
  Sex: Female

DRUGS (7)
  1. METHOTREXATE [Concomitant]
     Dosage: 1 MG, QWK
  2. PROTONIX [Concomitant]
     Dosage: UNK
  3. FOLIC ACID [Concomitant]
     Dosage: UNK
  4. ENBREL [Suspect]
     Indication: ANKYLOSING SPONDYLITIS
     Dosage: 50 MG, QWK
     Dates: start: 20060101
  5. LIPITOR [Concomitant]
     Dosage: UNK
  6. VYTORIN [Concomitant]
     Dosage: UNK
  7. BENICAR [Concomitant]
     Dosage: UNK

REACTIONS (1)
  - BREAST CANCER [None]
